FAERS Safety Report 4831898-0 (Version None)
Quarter: 2005Q4

REPORT INFORMATION
  Report Type: 
  Country: None (occurrence: None)
  Receive Date: 20051118
  Receipt Date: 20050224
  Transmission Date: 20060501
  Serious: Yes (Hospitalization, Disabling)
  Sender: FDA-Public Use
  Company Number: US-ROCHE-396865

PATIENT
  Age: 31 Year
  Sex: Female
  Weight: 87.5 kg

DRUGS (1)
  1. ACCUTANE [Suspect]
     Indication: ACNE
     Route: 048
     Dates: start: 19970617, end: 19971015

REACTIONS (25)
  - BACK PAIN [None]
  - CHEST PAIN [None]
  - CHOLECYSTITIS [None]
  - CHOLELITHIASIS [None]
  - CYSTITIS [None]
  - DEPRESSION [None]
  - DRUG INEFFECTIVE [None]
  - DYSPEPSIA [None]
  - EMOTIONAL DISTRESS [None]
  - FOCAL GLOMERULOSCLEROSIS [None]
  - HEADACHE [None]
  - KIDNEY FIBROSIS [None]
  - MAJOR DEPRESSION [None]
  - MIDDLE INSOMNIA [None]
  - MULTI-ORGAN DISORDER [None]
  - NECK PAIN [None]
  - PANIC ATTACK [None]
  - PELVIC INFLAMMATORY DISEASE [None]
  - PREGNANCY [None]
  - PROTEINURIA [None]
  - RENAL DISORDER [None]
  - ROAD TRAFFIC ACCIDENT [None]
  - SUICIDE ATTEMPT [None]
  - URINARY TRACT INFECTION [None]
  - VAGINITIS BACTERIAL [None]
